FAERS Safety Report 17241277 (Version 1)
Quarter: 2019Q4

REPORT INFORMATION
  Report Type: Spontaneous
  Country: US (occurrence: US)
  Receive Date: 20191211
  Receipt Date: 20191211
  Transmission Date: 20200122
  Serious: No
  Sender: FDA-Public Use
  Company Number: None

PATIENT

DRUGS (2)
  1. CVS NIGHTIME SLEEP PRODUCT (DOXYLAMINE SUCCINATE 25MG) [Suspect]
     Active Substance: DOXYLAMINE SUCCINATE
  2. CVS NIGHTIME SLEEP PRODUCT (DIPHENHYDRAMINE 25MG) [Suspect]
     Active Substance: DIPHENHYDRAMINE

REACTIONS (1)
  - Product dispensing error [None]

NARRATIVE: CASE EVENT DATE: 2019
